FAERS Safety Report 9922577 (Version 4)
Quarter: 2014Q2

REPORT INFORMATION
  Report Type: Spontaneous
  Country: US (occurrence: US)
  Receive Date: 20140225
  Receipt Date: 20140429
  Transmission Date: 20141212
  Serious: Yes (Other)
  Sender: FDA-Public Use
  Company Number: US-BAYER-2014-027560

PATIENT
  Age: 85 Year
  Sex: Female
  Weight: 71 kg

DRUGS (11)
  1. ALEVE CAPLET [Suspect]
     Indication: BACK PAIN
     Dosage: 1 DF, BID
     Route: 048
  2. ALEVE CAPLET [Suspect]
     Indication: ANALGESIC THERAPY
  3. GLIPIZIDE [Concomitant]
     Dosage: 1 DF, BID
  4. LISINOPRIL [Concomitant]
     Dosage: 0.5 DF, QD
     Route: 048
  5. VITAMIN B12 [Concomitant]
     Dosage: UNK
  6. CIPROFLOXACIN [Concomitant]
     Dosage: 1 DF, BID
  7. HYDROCODONE [Concomitant]
  8. KETOTIFEN [Concomitant]
     Dosage: UNK UNK, PRN
  9. FLUTICASONE [Concomitant]
     Dosage: 1-2 SPRAYS, QD
  10. LORATADINE [Concomitant]
     Dosage: 1 DF, QD
  11. NORCO [Concomitant]
     Dosage: 1 DF, Q4HR

REACTIONS (2)
  - Renal impairment [Not Recovered/Not Resolved]
  - Medication error [None]
